FAERS Safety Report 6141122-7 (Version None)
Quarter: 2009Q2

REPORT INFORMATION
  Report Type: 
  Country: None (occurrence: None)
  Receive Date: 20090401
  Receipt Date: 20090401
  Transmission Date: 20091009
  Serious: No
  Sender: FDA-Public Use
  Company Number: None

PATIENT
  Age: 74 Year
  Sex: Male

DRUGS (3)
  1. WARFARIN SODIUM [Suspect]
     Indication: ATRIAL FIBRILLATION
     Dates: start: 20081027, end: 20081110
  2. WARFARIN SODIUM [Suspect]
     Indication: MITRAL VALVE INCOMPETENCE
     Dates: start: 20081027, end: 20081110
  3. AMOXICILLIN [Suspect]
     Indication: ATRIAL FIBRILLATION
     Dates: start: 20081027, end: 20081110

REACTIONS (11)
  - ANAEMIA [None]
  - CHEST DISCOMFORT [None]
  - DIZZINESS POSTURAL [None]
  - DRUG INTERACTION [None]
  - FALL [None]
  - GAIT DISTURBANCE [None]
  - HAEMATOMA [None]
  - HEAD INJURY [None]
  - INTERNATIONAL NORMALISED RATIO INCREASED [None]
  - OCCULT BLOOD POSITIVE [None]
  - TENDERNESS [None]
